FAERS Safety Report 4822879-1 (Version None)
Quarter: 2005Q4

REPORT INFORMATION
  Report Type: 
  Country: None (occurrence: None)
  Receive Date: 20051104
  Receipt Date: 20051028
  Transmission Date: 20060501
  Serious: Yes (Life-Threatening, Hospitalization, Other)
  Sender: FDA-Public Use
  Company Number: KII-2005-0019385

PATIENT
  Age: 30 Year
  Sex: Male

DRUGS (2)
  1. MORPHINE [Suspect]
     Indication: DRUG USE FOR UNKNOWN INDICATION
     Dosage: ORAL
     Route: 048
  2. COCAINE            (COCAINE) [Suspect]
     Indication: INTENTIONAL DRUG MISUSE

REACTIONS (8)
  - CARDIAC ARREST [None]
  - HAEMODYNAMIC INSTABILITY [None]
  - HYPERTENSION [None]
  - HYPERTHERMIA [None]
  - HYPOTENSION [None]
  - LOSS OF CONSCIOUSNESS [None]
  - POLYSUBSTANCE ABUSE [None]
  - SINUS TACHYCARDIA [None]
